FAERS Safety Report 6056272-3 (Version None)
Quarter: 2009Q1

REPORT INFORMATION
  Report Type: 
  Country: None (occurrence: None)
  Receive Date: 20090129
  Receipt Date: 20090115
  Transmission Date: 20090719
  Serious: Yes (Hospitalization)
  Sender: FDA-Public Use
  Company Number: CA-ASTRAZENECA-2009UW01552

PATIENT
  Age: 60 Year
  Sex: Male
  Weight: 99 kg

DRUGS (9)
  1. SEROQUEL [Suspect]
     Route: 048
  2. ALTACE [Concomitant]
     Route: 048
  3. ASPIRIN [Concomitant]
  4. ATIVAN [Concomitant]
  5. CLONAZEPAM [Concomitant]
     Route: 048
  6. KEMADRIN [Concomitant]
  7. LIPITOR [Concomitant]
     Route: 048
  8. METFORMIN [Concomitant]
     Route: 065
  9. PROCYCLIDINE HCL [Concomitant]
     Route: 048

REACTIONS (6)
  - ABDOMINAL PAIN [None]
  - BENIGN PROSTATIC HYPERPLASIA [None]
  - BODY TEMPERATURE INCREASED [None]
  - HEART RATE INCREASED [None]
  - RESPIRATORY RATE INCREASED [None]
  - URINARY RETENTION [None]
